FAERS Safety Report 10570700 (Version 1)
Quarter: 2014Q4

REPORT INFORMATION
  Report Type: Spontaneous
  Country: US (occurrence: US)
  Receive Date: 20141107
  Receipt Date: 20141107
  Transmission Date: 20150529
  Serious: Yes (Life-Threatening, Other)
  Sender: FDA-Public Use
  Company Number: US-ABBVIE-14P-163-1304237-00

PATIENT
  Sex: Male

DRUGS (1)
  1. ANDROGEL [Suspect]
     Active Substance: TESTOSTERONE
     Indication: BLOOD TESTOSTERONE DECREASED
     Dosage: AS PRESCRIBED BY HIS PHYSICIAN
     Route: 062

REACTIONS (9)
  - Pain [Unknown]
  - Emotional distress [Unknown]
  - Injury [Unknown]
  - Cardiovascular disorder [Unknown]
  - Economic problem [Unknown]
  - Anxiety [Unknown]
  - Myocardial infarction [Unknown]
  - Aortic aneurysm [Unknown]
  - Impaired work ability [Unknown]

NARRATIVE: CASE EVENT DATE: 20110625
